FAERS Safety Report 10311366 (Version 1)
Quarter: 2014Q3

REPORT INFORMATION
  Report Type: Spontaneous
  Country: BR (occurrence: BR)
  Receive Date: 20140717
  Receipt Date: 20140717
  Transmission Date: 20150326
  Serious: Yes (Other)
  Sender: FDA-Public Use
  Company Number: BR-PFIZER INC-2014196666

PATIENT
  Sex: Female

DRUGS (1)
  1. LYRICA [Suspect]
     Active Substance: PREGABALIN
     Indication: SPINAL DISORDER
     Dosage: 1 CAPSULE (150 MG) DAILY
     Route: 048

REACTIONS (5)
  - Somnolence [Unknown]
  - Intervertebral disc protrusion [Unknown]
  - Cardiac disorder [Unknown]
  - Synovial disorder [Unknown]
  - Pain [Unknown]
